FAERS Safety Report 4532054-6 (Version None)
Quarter: 2004Q4

REPORT INFORMATION
  Report Type: 
  Country: None (occurrence: None)
  Receive Date: 20041220
  Receipt Date: 20041210
  Transmission Date: 20050328
  Serious: Yes (Hospitalization)
  Sender: FDA-Public Use
  Company Number: FR-GLAXOSMITHKLINE-B0362099A

PATIENT
  Age: 27 Year
  Sex: Male
  Weight: 71 kg

DRUGS (6)
  1. AUGMENTIN '125' [Suspect]
     Route: 048
     Dates: start: 20041029, end: 20041114
  2. ADIAZINE [Suspect]
     Route: 048
     Dates: start: 20041023, end: 20041114
  3. LAMALINE [Suspect]
     Route: 048
     Dates: start: 20041103, end: 20041114
  4. LEDERFOLINE [Suspect]
     Dosage: 1UNIT PER DAY
     Route: 048
     Dates: start: 20041023, end: 20041114
  5. MALOCIDE [Suspect]
     Dosage: 1UNIT PER DAY
     Route: 048
     Dates: start: 20041023, end: 20041114
  6. AUGMENTIN '125' [Suspect]
     Dosage: 1UNIT PER DAY
     Route: 054
     Dates: start: 20041023, end: 20041114

REACTIONS (4)
  - EOSINOPHIL COUNT INCREASED [None]
  - EXANTHEM [None]
  - RASH MACULO-PAPULAR [None]
  - STOMATITIS [None]
